FAERS Safety Report 9858170 (Version 1)
Quarter: 2014Q1

REPORT INFORMATION
  Report Type: Spontaneous
  Country: US (occurrence: US)
  Receive Date: 20140131
  Receipt Date: 20140131
  Transmission Date: 20141002
  Serious: Yes (Other)
  Sender: FDA-Public Use
  Company Number: US-BAYER-2014-012461

PATIENT
  Sex: Female

DRUGS (2)
  1. MIRENA [Suspect]
     Indication: ENDOMETRIOSIS
     Dosage: DAILY DOSE 20 ?G
     Dates: start: 20120210
  2. MIRENA [Suspect]
     Indication: CONTRACEPTION

REACTIONS (7)
  - Genital haemorrhage [Recovered/Resolved]
  - Hypomenorrhoea [Recovered/Resolved]
  - Menstruation irregular [None]
  - Menstruation delayed [None]
  - Polymenorrhoea [None]
  - Menorrhagia [None]
  - Off label use [None]
